FAERS Safety Report 5504737-2 (Version None)
Quarter: 2007Q4

REPORT INFORMATION
  Report Type: 
  Country: None (occurrence: None)
  Receive Date: 20071031
  Receipt Date: 20070809
  Transmission Date: 20080405
  Serious: Yes (Other)
  Sender: FDA-Public Use
  Company Number: AMI0003848

PATIENT
  Sex: Female

DRUGS (4)
  1. LACRISERT [Suspect]
     Dosage: OCCULAR
     Dates: start: 20070731
  2. ACETAMINOPHEN/OXYCODONE HCL (PERCOCET) [Concomitant]
  3. ZOPICLONE [Concomitant]
  4. CYANOCOLALAMIN AND GABAPENTIN [Concomitant]

REACTIONS (3)
  - BLINDNESS TRANSIENT [None]
  - DIZZINESS [None]
  - EYE IRRITATION [None]
